FAERS Safety Report 5463268-9 (Version None)
Quarter: 2007Q3

REPORT INFORMATION
  Report Type: 
  Country: None (occurrence: None)
  Receive Date: 20070920
  Receipt Date: 20070903
  Transmission Date: 20080115
  Serious: Yes (Death, Other)
  Sender: FDA-Public Use
  Company Number: GB-BRISTOL-MYERS SQUIBB COMPANY-13904040

PATIENT
  Age: 25 Year
  Sex: Male

DRUGS (1)
  1. IFOSFAMIDE [Suspect]
     Indication: SARCOMA
     Dosage: DOSE/FORM:3.33 G/M2
     Dates: start: 20011001, end: 20011101

REACTIONS (5)
  - DISEASE PROGRESSION [None]
  - FANCONI SYNDROME [None]
  - NEOPLASM MALIGNANT [None]
  - OSTEOMALACIA [None]
  - RENAL TUBULAR DISORDER [None]
